FAERS Safety Report 4906151-7 (Version None)
Quarter: 2006Q1

REPORT INFORMATION
  Report Type: 
  Country: None (occurrence: None)
  Receive Date: 20060207
  Receipt Date: 20060207
  Transmission Date: 20060701
  Serious: Yes (Hospitalization)
  Sender: FDA-Public Use
  Company Number: None

PATIENT
  Age: 60 Year
  Sex: Male
  Weight: 83.9154 kg

DRUGS (19)
  1. ATORVASTATIN CALCIUM [Suspect]
     Indication: DYSLIPIDAEMIA
     Dosage: 10 MG QHS
     Dates: start: 20051027, end: 20051103
  2. NIACIN [Suspect]
     Indication: DYSLIPIDAEMIA
     Dosage: 500 MG QHS
     Dates: start: 20051004, end: 20051103
  3. LOVASTATIN 20 MG DAILY [Suspect]
     Dosage: 20 MG DAILY
     Dates: start: 20051004, end: 20051027
  4. NICOTINE [Concomitant]
  5. CHLOROHENIRAMINE MALEATE [Concomitant]
  6. CLOPIDOGREL BISULFATE [Concomitant]
  7. ASPIRIN [Concomitant]
  8. TRAMADOL HCL [Concomitant]
  9. AMITRIPTYLINE HCL [Concomitant]
  10. BUPROPION HCL [Concomitant]
  11. METOPROLOL TARTRATE [Concomitant]
  12. TERAZOSIN HCL [Concomitant]
  13. ISOSORBIDE DINITRATE [Concomitant]
  14. NITROGLYCERIN SL [Concomitant]
  15. HYDRALAZINE HCL [Concomitant]
  16. ACCU-CHEK COMFORT CV [Concomitant]
  17. RANITIDINE HCL [Concomitant]
  18. GLIPIZIDE [Concomitant]
  19. SODIUM CHLORIDE [Concomitant]

REACTIONS (2)
  - FALL [None]
  - RHABDOMYOLYSIS [None]
